FAERS Safety Report 22690542 (Version 2)
Quarter: 2024Q4

REPORT INFORMATION
  Report Type: Spontaneous
  Country: US (occurrence: US)
  Receive Date: 20230711
  Receipt Date: 20241029
  Transmission Date: 20250115
  Serious: Yes (Hospitalization, Other)
  Sender: SANOFI AVENTIS
  Company Number: US-SA-SAC20230710001172

PATIENT
  Age: 47 Year
  Sex: Female

DRUGS (2)
  1. FABRAZYME [Suspect]
     Active Substance: AGALSIDASE BETA
     Indication: Fabry^s disease
     Dosage: 95 MG(70MG+25MG), QOW
     Route: 042
     Dates: start: 202301
  2. FABRAZYME [Suspect]
     Active Substance: AGALSIDASE BETA
     Dosage: 190 MG, QOW
     Route: 042

REACTIONS (10)
  - Cardiac valve thickening [Unknown]
  - Cornea verticillata [Unknown]
  - Cardiac pacemaker insertion [Unknown]
  - Angiokeratoma [Unknown]
  - Constipation [Unknown]
  - Tinnitus [Unknown]
  - Diarrhoea [Unknown]
  - Paraesthesia [Unknown]
  - Fabry^s disease [Unknown]
  - Condition aggravated [Unknown]

NARRATIVE: CASE EVENT DATE: 20230101
